FAERS Safety Report 8255283-7 (Version None)
Quarter: 2012Q1

REPORT INFORMATION
  Report Type: 
  Country: None (occurrence: None)
  Receive Date: 20120330
  Receipt Date: 20120320
  Transmission Date: 20120608
  Serious: Yes (Death)
  Sender: FDA-Public Use
  Company Number: 1233602

PATIENT
  Age: 65 Year
  Sex: Male

DRUGS (25)
  1. CYTARABINE [Suspect]
     Indication: MYELODYSPLASTIC SYNDROME
     Dosage: NOT REPORTED, UNKNOWN, UNKNOWN
  2. CYTARABINE [Suspect]
     Indication: DIFFUSE LARGE B-CELL LYMPHOMA
     Dosage: NOT REPORTED, UNKNOWN, UNKNOWN
  3. CYTARABINE [Suspect]
     Indication: ACUTE MYELOID LEUKAEMIA
     Dosage: NOT REPORTED, UNKNOWN, UNKNOWN
  4. IDARUBICIN HCL [Suspect]
     Indication: MYELODYSPLASTIC SYNDROME
     Dosage: NOT REPORTED, UNKNOWN, UNKNOWN
  5. IDARUBICIN HCL [Suspect]
     Indication: DIFFUSE LARGE B-CELL LYMPHOMA
     Dosage: NOT REPORTED, UNKNOWN, UNKNOWN
  6. VALACICLOVIR [Suspect]
     Indication: CYTOMEGALOVIRUS VIRAEMIA
     Dosage: NOT REPORTED, UNKNOWN, UNKNOWN
  7. ETOPOSIDE [Suspect]
     Indication: MYELODYSPLASTIC SYNDROME
     Dosage: NOT REPORTED, UNKNOWN, UNKNOWN
  8. ETOPOSIDE [Suspect]
     Indication: DIFFUSE LARGE B-CELL LYMPHOMA
     Dosage: NOT REPORTED, UNKNOWN, UNKNOWN
  9. ACYCLOVIR [Suspect]
     Indication: CYTOMEGALOVIRUS VIRAEMIA
     Dosage: NOT REPORTED, UNKNOWN, UNKNOWN
  10. RITUXIMAB [Suspect]
     Indication: MYELODYSPLASTIC SYNDROME
     Dosage: NOT REPORTED, UNKNOWN, UNKNOWN
  11. RITUXIMAB [Suspect]
     Indication: DIFFUSE LARGE B-CELL LYMPHOMA
     Dosage: NOT REPORTED, UNKNOWN, UNKNOWN
  12. FOSCARNET SODIUM [Suspect]
     Indication: CYTOMEGALOVIRUS VIRAEMIA
     Dosage: NOT REPORTED, UNKNOWN, UNKNOWN
  13. MITOXANTRONE HYDROCHLORIDE [Suspect]
     Indication: DIFFUSE LARGE B-CELL LYMPHOMA
     Dosage: NOT REPORTED, UNKNOWN, UNKNOWN
  14. MITOXANTRONE HYDROCHLORIDE [Suspect]
     Indication: MYELODYSPLASTIC SYNDROME
     Dosage: NOT REPORTED, UNKNOWN, UNKNOWN
  15. ANTI-THYMOCYTE GLOBULIN EQUINE NOS [Suspect]
     Indication: MYELODYSPLASTIC SYNDROME
     Dosage: NOT REPORTED, UNKNOWN, UNKNOWN
  16. ANTI-THYMOCYTE GLOBULIN EQUINE NOS [Suspect]
     Indication: ACUTE MYELOID LEUKAEMIA
     Dosage: NOT REPORTED, UNKNOWN, UNKNOWN
  17. ANTI-THYMOCYTE GLOBULIN EQUINE NOS [Suspect]
     Indication: DIFFUSE LARGE B-CELL LYMPHOMA
     Dosage: NOT REPORTED, UNKNOWN, UNKNOWN
  18. FLUDARABINE PHOSPHATE [Suspect]
     Indication: DIFFUSE LARGE B-CELL LYMPHOMA
     Dosage: NOT REPORTED, UNKNOWN, UNKNOWN
  19. FLUDARABINE PHOSPHATE [Suspect]
     Indication: MYELODYSPLASTIC SYNDROME
     Dosage: NOT REPORTED, UNKNOWN, UNKNOWN
  20. FLUDARABINE PHOSPHATE [Suspect]
     Indication: ACUTE MYELOID LEUKAEMIA
     Dosage: NOT REPORTED, UNKNOWN, UNKNOWN
  21. THERAPEUTIC RADIOPHARMACEUTICALS [Suspect]
     Indication: DIFFUSE LARGE B-CELL LYMPHOMA
     Dosage: NOT REPORTED, UNKNOWN, OTHER
  22. THERAPEUTIC RADIOPHARMACEUTICALS [Suspect]
     Indication: MYELODYSPLASTIC SYNDROME
     Dosage: NOT REPORTED, UNKNOWN, OTHER
  23. THIOTEPA [Suspect]
     Indication: MYELODYSPLASTIC SYNDROME
     Dosage: NOT REPORTED, UNKNOWN, UNKNOWN
  24. THIOTEPA [Suspect]
     Indication: ACUTE MYELOID LEUKAEMIA
     Dosage: NOT REPORTED, UNKNOWN, UNKNOWN
  25. THIOTEPA [Suspect]
     Indication: DIFFUSE LARGE B-CELL LYMPHOMA
     Dosage: NOT REPORTED, UNKNOWN, UNKNOWN

REACTIONS (2)
  - CNS VENTRICULITIS [None]
  - ENCEPHALITIS CYTOMEGALOVIRUS [None]
